FAERS Safety Report 7435964-5 (Version None)
Quarter: 2011Q2

REPORT INFORMATION
  Report Type: 
  Country: None (occurrence: None)
  Receive Date: 20110425
  Receipt Date: 20110420
  Transmission Date: 20111010
  Serious: No
  Sender: FDA-Public Use
  Company Number: US-B.I. PHARMACEUTICALS,INC./RIDGEFIELD-2011-BP-11348BP

PATIENT
  Sex: Male

DRUGS (12)
  1. PRADAXA [Suspect]
     Indication: ATRIAL FIBRILLATION
     Dosage: 300 MG
     Route: 048
     Dates: start: 20110101, end: 20110315
  2. LEXAPRO [Concomitant]
     Indication: DEPRESSION
  3. FISH OIL [Concomitant]
     Indication: ROUTINE HEALTH MAINTENANCE
  4. LANSOPRAZOL [Concomitant]
     Indication: GASTROOESOPHAGEAL REFLUX DISEASE
  5. MULTI-VITAMIN [Concomitant]
     Indication: ROUTINE HEALTH MAINTENANCE
  6. DEPAKOTE [Concomitant]
     Indication: CONVULSION
  7. PRADAXA [Suspect]
     Dosage: 300 MG
     Route: 048
     Dates: start: 20110330
  8. METOPROLOL [Concomitant]
     Indication: ATRIAL FIBRILLATION
  9. ENALAPRIL [Concomitant]
     Indication: HYPERTENSION
  10. SIMVASTATIN [Concomitant]
     Indication: BLOOD TRIGLYCERIDES
  11. TRILIPIX [Concomitant]
     Indication: BLOOD TRIGLYCERIDES
  12. ASCORBIC ACID [Concomitant]
     Indication: ROUTINE HEALTH MAINTENANCE

REACTIONS (2)
  - NEPHROLITHIASIS [None]
  - BLOOD URINE PRESENT [None]
